FAERS Safety Report 12014092 (Version 1)
Quarter: 2016Q1

REPORT INFORMATION
  Report Type: Spontaneous
  Country: CH (occurrence: CH)
  Receive Date: 20160205
  Receipt Date: 20160205
  Transmission Date: 20160526
  Serious: Yes (Life-Threatening)
  Sender: FDA-Public Use
  Company Number: CH-FRESENIUS KABI-FK201600541

PATIENT
  Sex: Male

DRUGS (14)
  1. INSTILLAGEL [Suspect]
     Active Substance: CHLORHEXIDINE GLUCONATE\LIDOCAINE HYDROCHLORIDE
     Route: 061
     Dates: start: 20140909, end: 20140909
  2. SUFENTA [Suspect]
     Active Substance: SUFENTANIL CITRATE
     Indication: GENERAL ANAESTHESIA
     Route: 042
     Dates: start: 20151104, end: 20151104
  3. LIDOCAINE. [Concomitant]
     Active Substance: LIDOCAINE
     Route: 065
     Dates: start: 20130626, end: 20130626
  4. SINTENYL [Suspect]
     Active Substance: FENTANYL CITRATE
     Indication: GENERAL ANAESTHESIA
     Route: 042
     Dates: start: 20151104, end: 20151104
  5. ESMERON [Suspect]
     Active Substance: ROCURONIUM BROMIDE
     Indication: GENERAL ANAESTHESIA
     Route: 042
     Dates: start: 20151104, end: 20151104
  6. ESMERON [Suspect]
     Active Substance: ROCURONIUM BROMIDE
     Route: 042
     Dates: start: 20140909, end: 20140909
  7. PROPOFOL MCT FRESENIUS (NOT SPECIFIED) [Suspect]
     Active Substance: PROPOFOL
     Route: 042
     Dates: start: 20130626, end: 20130626
  8. LIDOCAINE. [Concomitant]
     Active Substance: LIDOCAINE
     Route: 065
     Dates: start: 20151104, end: 20151104
  9. INSTILLAGEL [Suspect]
     Active Substance: CHLORHEXIDINE GLUCONATE\LIDOCAINE HYDROCHLORIDE
     Indication: INFECTION PROPHYLAXIS
     Route: 061
     Dates: start: 20151104, end: 20151104
  10. SUFENTA [Suspect]
     Active Substance: SUFENTANIL CITRATE
     Route: 042
     Dates: start: 20140909, end: 20140909
  11. EPINEPHRINE. [Concomitant]
     Active Substance: EPINEPHRINE
     Route: 065
     Dates: start: 20151104, end: 20151104
  12. PROPOFOL MCT FRESENIUS (NOT SPECIFIED) [Suspect]
     Active Substance: PROPOFOL
     Indication: INDUCTION OF ANAESTHESIA
     Route: 042
     Dates: start: 20151104, end: 20151104
  13. SINTENYL [Suspect]
     Active Substance: FENTANYL CITRATE
     Route: 042
     Dates: start: 20130626, end: 20130626
  14. EPINEPHRINE. [Concomitant]
     Active Substance: EPINEPHRINE
     Route: 065
     Dates: start: 20140909, end: 20140909

REACTIONS (1)
  - Anaphylactic shock [Recovered/Resolved]

NARRATIVE: CASE EVENT DATE: 20151104
